FAERS Safety Report 6014760-X (Version None)
Quarter: 2008Q4

REPORT INFORMATION
  Report Type: 
  Country: None (occurrence: None)
  Receive Date: 20081219
  Receipt Date: 20081212
  Transmission Date: 20090506
  Serious: Yes (Other)
  Sender: FDA-Public Use
  Company Number: ES-ABBOTT-08P-144-0492821-00

PATIENT
  Age: 57 Year
  Sex: Male

DRUGS (4)
  1. HUMIRA [Suspect]
     Indication: RHEUMATOID ARTHRITIS
     Route: 058
     Dates: start: 20061201
  2. METHOTREXATE [Suspect]
     Indication: RHEUMATOID ARTHRITIS
     Route: 058
     Dates: start: 20061201
  3. ANTI-HYPERTENSIVE [Concomitant]
     Indication: ISCHAEMIC CARDIOMYOPATHY
     Route: 048
  4. HYPOLIPERNIANTE [Concomitant]
     Indication: ISCHAEMIC CARDIOMYOPATHY
     Route: 048

REACTIONS (1)
  - CUTANEOUS LEISHMANIASIS [None]
